FAERS Safety Report 6403901-8 (Version None)
Quarter: 2009Q4

REPORT INFORMATION
  Report Type: 
  Country: None (occurrence: None)
  Receive Date: 20091016
  Receipt Date: 20090915
  Transmission Date: 20100525
  Serious: No
  Sender: FDA-Public Use
  Company Number: US-BAYER-200826514NA

PATIENT
  Sex: Male

DRUGS (8)
  1. NEXAVAR [Suspect]
     Indication: HEPATIC NEOPLASM MALIGNANT
     Dosage: TOTAL DAILY DOSE: 800 MG  UNIT DOSE: 200 MG
     Route: 048
     Dates: start: 20090822, end: 20090910
  2. NEXAVAR [Suspect]
     Dates: start: 20080101
  3. NEXAVAR [Suspect]
     Dates: start: 20090401, end: 20090408
  4. MEDICATION FOR PROSTATE [Concomitant]
     Indication: PROSTATIC DISORDER
  5. MEDICATION FOR BLOOD PRESSURE [Concomitant]
     Indication: BLOOD PRESSURE ABNORMAL
  6. MEDICATION FOR DIABETIC NEUROPATHY [Concomitant]
     Indication: DIABETIC NEUROPATHY
  7. MEDICATION FOR PAIN [Concomitant]
     Indication: PAIN
  8. MEDICATION FOR ARRYHTHMIAS [Concomitant]
     Indication: ARRHYTHMIA

REACTIONS (6)
  - CANDIDIASIS [None]
  - DECREASED APPETITE [None]
  - HEADACHE [None]
  - HYPOPHAGIA [None]
  - PAIN IN EXTREMITY [None]
  - RASH [None]
